FAERS Safety Report 14551806 (Version 3)
Quarter: 2018Q2

REPORT INFORMATION
  Report Type: Spontaneous
  Country: IT (occurrence: IT)
  Receive Date: 20180220
  Receipt Date: 20180606
  Transmission Date: 20180711
  Serious: Yes (Hospitalization)
  Sender: FDA-Public Use
  Company Number: IT-ROCHE-2071006

PATIENT
  Age: 44 Year
  Sex: Female

DRUGS (2)
  1. VALIUM [Suspect]
     Active Substance: DIAZEPAM
     Indication: DEPRESSION
     Route: 048
     Dates: start: 20171031, end: 20171031
  2. OLANZAPINE. [Suspect]
     Active Substance: OLANZAPINE
     Indication: DEPRESSION
     Route: 065

REACTIONS (2)
  - Drug abuse [Unknown]
  - Sopor [Recovered/Resolved]

NARRATIVE: CASE EVENT DATE: 20171031
